FAERS Safety Report 8773518 (Version 1)
Quarter: 2012Q4

REPORT INFORMATION
  Report Type: 
  Country: US (occurrence: US)
  Receive Date: 20120907
  Receipt Date: 20120907
  Transmission Date: 20130627
  Serious: Yes (Hospitalization)
  Sender: FDA-Public Use
  Company Number: US-VIIV HEALTHCARE LIMITED-A0992402A

PATIENT
  Sex: Male

DRUGS (1)
  1. SELZENTRY [Suspect]
     Indication: HIV INFECTION
     Route: 065

REACTIONS (2)
  - Deep vein thrombosis [Unknown]
  - Rash [Unknown]
